FAERS Safety Report 7338193-9 (Version None)
Quarter: 2011Q1

REPORT INFORMATION
  Report Type: 
  Country: None (occurrence: None)
  Receive Date: 20110308
  Receipt Date: 20110209
  Transmission Date: 20110831
  Serious: No
  Sender: FDA-Public Use
  Company Number: US-B.I. PHARMACEUTICALS,INC./RIDGEFIELD-2011-BP-05321BP

PATIENT
  Sex: Female

DRUGS (4)
  1. PRADAXA [Suspect]
     Indication: ATRIAL FIBRILLATION
  2. DEPAKOTE ER [Suspect]
     Indication: MIGRAINE PROPHYLAXIS
     Dosage: 750 MG
  3. AGGRENOX [Suspect]
  4. DEPAKOTE [Suspect]
     Indication: MIGRAINE PROPHYLAXIS
     Dosage: 2250 MCG
     Dates: start: 20100704

REACTIONS (1)
  - ALOPECIA [None]
